FAERS Safety Report 19367408 (Version 2)
Quarter: 2021Q4

REPORT INFORMATION
  Report Type: Spontaneous
  Country: US (occurrence: US)
  Receive Date: 20210602
  Receipt Date: 20211011
  Transmission Date: 20220303
  Serious: No
  Sender: FDA-Public Use
  Company Number: US-ROCHE-2811508

PATIENT
  Sex: Female
  Weight: 24.97 kg

DRUGS (1)
  1. EVRYSDI [Suspect]
     Active Substance: RISDIPLAM
     Indication: Spinal muscular atrophy
     Dosage: PER 6.6 ML
     Route: 048

REACTIONS (3)
  - Product storage error [Unknown]
  - Product taste abnormal [Unknown]
  - No adverse event [Unknown]
